FAERS Safety Report 14667211 (Version 2)
Quarter: 2018Q3

REPORT INFORMATION
  Report Type: Report from Study
  Country: CL (occurrence: CL)
  Receive Date: 20180322
  Receipt Date: 20180905
  Transmission Date: 20181010
  Serious: Yes (Hospitalization, Other)
  Sender: FDA-Public Use
  Company Number: CL-BRISTOL-MYERS SQUIBB COMPANY-BMS-2017-024676

PATIENT
  Age: 57 Year
  Sex: Female

DRUGS (2)
  1. ABATACEPT [Suspect]
     Active Substance: ABATACEPT
     Indication: PRODUCT USED FOR UNKNOWN INDICATION
     Dosage: 125 MG, QWK
     Route: 058
     Dates: end: 201706
  2. ABATACEPT [Suspect]
     Active Substance: ABATACEPT
     Indication: RHEUMATOID ARTHRITIS
     Dosage: 125 MG, QWK
     Route: 058
     Dates: start: 20161020, end: 20170216

REACTIONS (12)
  - Myocardial infarction [Recovering/Resolving]
  - Pain [Recovering/Resolving]
  - Gait disturbance [Recovering/Resolving]
  - Anal abscess [Recovering/Resolving]
  - Pyelonephritis [Recovering/Resolving]
  - Hypertension [Recovering/Resolving]
  - Wound [Recovering/Resolving]
  - Dysphonia [Recovering/Resolving]
  - Abscess drainage [Unknown]
  - Memory impairment [Recovering/Resolving]
  - Cough [Recovering/Resolving]
  - Perinephric abscess [Recovering/Resolving]

NARRATIVE: CASE EVENT DATE: 2017
